FAERS Safety Report 8574658-X (Version None)
Quarter: 2012Q3

REPORT INFORMATION
  Report Type: 
  Country: None (occurrence: None)
  Receive Date: 20120807
  Receipt Date: 20120726
  Transmission Date: 20120928
  Serious: No
  Sender: FDA-Public Use
  Company Number: US-009507513-1206USA04501

PATIENT

DRUGS (4)
  1. ALBUTEROL [Concomitant]
     Indication: ASTHMA
     Dosage: 0.63MG/3ML, PRN
  2. SINGULAIR [Suspect]
     Indication: ASTHMA
     Dosage: 5 MG, QD
     Route: 048
     Dates: start: 20120525, end: 20120625
  3. ZYRTEC [Concomitant]
  4. QVAR 40 [Concomitant]
     Indication: ASTHMA
     Dosage: UNK DF, BID

REACTIONS (5)
  - MOOD SWINGS [None]
  - ABNORMAL BEHAVIOUR [None]
  - CRYING [None]
  - AGGRESSION [None]
  - MOOD ALTERED [None]
